FAERS Safety Report 6377615-7 (Version None)
Quarter: 2009Q3

REPORT INFORMATION
  Report Type: 
  Country: None (occurrence: None)
  Receive Date: 20090923
  Receipt Date: 20090923
  Transmission Date: 20100115
  Serious: Yes (Death)
  Sender: FDA-Public Use
  Company Number: None

PATIENT
  Sex: Male

DRUGS (9)
  1. REVLIMID [Suspect]
     Indication: CHRONIC LYMPHOCYTIC LEUKAEMIA
     Dosage: 10MG 2 CAPSULES DAILY ORAL
     Route: 048
     Dates: start: 20090731, end: 20090825
  2. ALLOPURINOL [Concomitant]
  3. ATENOLOL [Concomitant]
  4. OMEPRAZOLE [Concomitant]
  5. ONDANSETRON [Concomitant]
  6. SEPTRA DS [Concomitant]
  7. ACYCLOVIR [Concomitant]
  8. TEMAZEPAM [Concomitant]
  9. SOLU-MEDROL [Concomitant]

REACTIONS (2)
  - LUNG INFECTION [None]
  - OPPORTUNISTIC INFECTION [None]
